FAERS Safety Report 4923505-3 (Version None)
Quarter: 2006Q1

REPORT INFORMATION
  Report Type: 
  Country: None (occurrence: None)
  Receive Date: 20060221
  Receipt Date: 20060208
  Transmission Date: 20060701
  Serious: Yes (Other)
  Sender: FDA-Public Use
  Company Number: 2006009189

PATIENT
  Sex: Female
  Weight: 47.6277 kg

DRUGS (11)
  1. LIPITOR [Suspect]
     Indication: BLOOD CHOLESTEROL INCREASED
     Dosage: ORAL
     Route: 048
  2. LYRICA [Suspect]
     Indication: NEUROPATHY
     Dosage: 125 MG (125 MG, 1 IN 1 D), ORAL
     Route: 048
     Dates: start: 20051104
  3. NEURONTIN [Suspect]
     Indication: MUSCLE SPASMS
     Dosage: ORAL
     Route: 048
  4. TOPAMAX [Suspect]
     Indication: ILL-DEFINED DISORDER
     Dosage: ORAL
     Route: 048
  5. CYMBALTA [Suspect]
     Indication: ILL-DEFINED DISORDER
     Dosage: ORAL
     Route: 048
  6. DYAZIDE [Concomitant]
  7. DIOVAN [Concomitant]
  8. LEVOTHYROXINE SODIUM [Concomitant]
  9. MINERAL SUPPLEMENTS (MINERAL SUPPLEMENTS) [Concomitant]
  10. PREMARIN [Concomitant]
  11. ESTRATEST H.S. [Concomitant]

REACTIONS (7)
  - ARTERIAL STENT INSERTION [None]
  - DRUG INTOLERANCE [None]
  - MUSCLE SPASMS [None]
  - NEUROPATHY [None]
  - POST PROCEDURAL COMPLICATION [None]
  - SEXUAL DYSFUNCTION [None]
  - SURGERY [None]
